FAERS Safety Report 12624654 (Version 1)
Quarter: 2016Q3

REPORT INFORMATION
  Report Type: Spontaneous
  Country: US (occurrence: None)
  Receive Date: 20160804
  Receipt Date: 20160804
  Transmission Date: 20161109
  Serious: No
  Sender: FDA-Public Use
  Company Number: None

PATIENT
  Age: 51 Year
  Sex: Female
  Weight: 72.58 kg

DRUGS (8)
  1. VICTOZA [Suspect]
     Active Substance: LIRAGLUTIDE
     Indication: DIABETES MELLITUS
     Dosage: GIVEN INTO/UNDER THE SKIN
  2. TRULICITY [Suspect]
     Active Substance: DULAGLUTIDE
     Indication: DIABETES MELLITUS
     Dosage: GIVEN INTO/UNDER THE SKIN
  3. MINIVELLE [Concomitant]
     Active Substance: ESTRADIOL
  4. HUMALOG [Concomitant]
     Active Substance: INSULIN LISPRO
  5. ACYCLOVIR. [Concomitant]
     Active Substance: ACYCLOVIR
  6. CRESTOR [Concomitant]
     Active Substance: ROSUVASTATIN CALCIUM
  7. VICTOZA [Suspect]
     Active Substance: LIRAGLUTIDE
     Indication: WEIGHT INCREASED
     Dosage: GIVEN INTO/UNDER THE SKIN
  8. NATURES BOUNTY HAIR, SKIN AND NAILS [Concomitant]

REACTIONS (5)
  - Diarrhoea [None]
  - Vomiting [None]
  - Malaise [None]
  - Constipation [None]
  - Abdominal pain upper [None]

NARRATIVE: CASE EVENT DATE: 20160722
